FAERS Safety Report 4668369-0 (Version None)
Quarter: 2005Q2

REPORT INFORMATION
  Report Type: 
  Country: None (occurrence: None)
  Receive Date: 20050523
  Receipt Date: 20050512
  Transmission Date: 20051028
  Serious: Yes (Other)
  Sender: FDA-Public Use
  Company Number: US-JNJFOC-20050503436

PATIENT
  Sex: Female
  Weight: 71.67 kg

DRUGS (20)
  1. INFLIXIMAB [Suspect]
     Indication: RHEUMATOID ARTHRITIS
     Route: 042
  2. METHOTREXATE [Concomitant]
  3. PREDNISONE [Concomitant]
  4. FOLIC ACID [Concomitant]
  5. OXYBUTYNIN [Concomitant]
  6. PRILOSEC [Concomitant]
  7. MULTI-VITAMIN [Concomitant]
  8. MULTI-VITAMIN [Concomitant]
  9. MULTI-VITAMIN [Concomitant]
  10. MULTI-VITAMIN [Concomitant]
  11. MULTI-VITAMIN [Concomitant]
  12. MULTI-VITAMIN [Concomitant]
  13. MULTI-VITAMIN [Concomitant]
  14. MULTI-VITAMIN [Concomitant]
  15. ACTONEL [Concomitant]
  16. VITAMIN E [Concomitant]
  17. OS-CAL [Concomitant]
  18. OS-CAL [Concomitant]
  19. VIT C TAB [Concomitant]
  20. CELEBREX [Concomitant]

REACTIONS (1)
  - SKIN CANCER [None]
